FAERS Safety Report 5007506-5 (Version None)
Quarter: 2006Q2

REPORT INFORMATION
  Report Type: 
  Country: None (occurrence: None)
  Receive Date: 20060403
  Receipt Date: 20050921
  Transmission Date: 20061013
  Serious: Yes (Life-Threatening, Other)
  Sender: FDA-Public Use
  Company Number: 20772

PATIENT
  Age: 50 Year
  Sex: Female

DRUGS (22)
  1. ADRIAMYCIN (DOXORUBICIN) INJ. USP 10MG/5ML - BEDFORD LABS, INC. [Suspect]
     Dates: start: 20050324
  2. LYSINE [Concomitant]
  3. GELCLAIR [Concomitant]
  4. HYDROCODONE [Concomitant]
  5. CIPROFLOXACIN [Concomitant]
  6. AMOXICILLIN [Concomitant]
  7. PARACETAMOL [Concomitant]
  8. DARBEPOETIN ALFA [Concomitant]
  9. ORPHENADRINE CITRATE [Concomitant]
  10. ALPRAZOLAM [Concomitant]
  11. TRAZODONE HCL [Concomitant]
  12. POTASSIUM CHLORIDE [Concomitant]
  13. FUROSEMIDE [Concomitant]
  14. TRIAMCINOLONE [Concomitant]
  15. VALSARTAN [Concomitant]
  16. ONDANSETRON [Concomitant]
  17. LORAZEPAM [Concomitant]
  18. PROMETHAZINE HCL [Concomitant]
  19. A MOUTH WASH OF XYLOCAINE [Concomitant]
  20. MAALOX FAST BLOCKER [Concomitant]
  21. MYLANTA [Concomitant]
  22. NYSTATIN [Concomitant]

REACTIONS (2)
  - LEUKOPENIA [None]
  - NEUTROPENIA [None]
